FAERS Safety Report 7742109-0 (Version None)
Quarter: 2011Q3

REPORT INFORMATION
  Report Type: 
  Country: None (occurrence: None)
  Receive Date: 20110912
  Receipt Date: 20110126
  Transmission Date: 20111222
  Serious: No
  Sender: FDA-Public Use
  Company Number: US-BAYER-2011-010096

PATIENT
  Sex: Female

DRUGS (1)
  1. MIRENA [Suspect]
     Indication: MENORRHAGIA
     Dosage: 20 MCG/24HR, CONT
     Route: 015
     Dates: start: 20050101, end: 20090101

REACTIONS (6)
  - ALOPECIA [None]
  - ABNORMAL WITHDRAWAL BLEEDING [None]
  - HOT FLUSH [None]
  - NIGHT SWEATS [None]
  - CHLOASMA [None]
  - WEIGHT INCREASED [None]
